FAERS Safety Report 11568664 (Version 7)
Quarter: 2016Q1

REPORT INFORMATION
  Report Type: Report from Study
  Country: ES (occurrence: ES)
  Receive Date: 20150929
  Receipt Date: 20160308
  Transmission Date: 20160525
  Serious: Yes (Hospitalization)
  Sender: FDA-Public Use
  Company Number: ES-ROCHE-1635417

PATIENT
  Age: 42 Year
  Sex: Female
  Weight: 60.3 kg

DRUGS (16)
  1. TRASTUZUMAB [Suspect]
     Active Substance: TRASTUZUMAB
     Indication: BREAST CANCER
     Dosage: LOADING DOSE
     Route: 042
     Dates: start: 20150113
  2. DOXORUBICIN [Suspect]
     Active Substance: DOXORUBICIN
     Indication: BREAST CANCER
     Dosage: ADMINISTERED 4 CYCLES  (CYCLES 1-4) AS PER PROTOCOL.?DATE OF MOST RECENT DOSE: 23/DEC/2014
     Route: 042
     Dates: start: 20141030
  3. PACLITAXEL. [Suspect]
     Active Substance: PACLITAXEL
     Indication: BREAST CANCER
     Dosage: ADMINISTERED TOTAL OF 12 WEEKS AS PER PROTOCOL. DOSE OF LAST PACLITAXEL ADMINSTERED WAS 100 MG ON 16
     Route: 042
     Dates: start: 20150113
  4. ATARAX [Concomitant]
     Active Substance: HYDROXYZINE\HYDROXYZINE HYDROCHLORIDE
     Indication: RASH
     Route: 065
     Dates: start: 20150216
  5. LORAZEPAM. [Concomitant]
     Active Substance: LORAZEPAM
     Indication: DEPRESSION
     Route: 048
     Dates: start: 20141001
  6. PERTUZUMAB [Suspect]
     Active Substance: PERTUZUMAB
     Indication: BREAST CANCER
     Dosage: LOADING DOSE
     Route: 042
     Dates: start: 20150113
  7. CYCLOPHOSPHAMIDE. [Suspect]
     Active Substance: CYCLOPHOSPHAMIDE
     Indication: BREAST CANCER
     Dosage: ADMINISTERED 4 CYCLES  (CYCLES 1-4) AS PER PROTOCOL.?DATE OF MOST RECENT DOSE: 23/DEC/2014
     Route: 042
     Dates: start: 20141030
  8. BROMAZEPAM [Concomitant]
     Active Substance: BROMAZEPAM
     Indication: DEPRESSION
     Route: 048
  9. MIRTAZAPINE. [Concomitant]
     Active Substance: MIRTAZAPINE
     Indication: DEPRESSION
     Route: 048
     Dates: start: 20150715, end: 20150813
  10. OMEPRAZOL [Concomitant]
     Active Substance: OMEPRAZOLE
     Route: 048
     Dates: start: 20150126
  11. DIPRODERM (SPAIN) [Concomitant]
     Indication: RASH
     Route: 065
     Dates: start: 20150216
  12. RANITIDINE [Concomitant]
     Active Substance: RANITIDINE\RANITIDINE HYDROCHLORIDE
     Indication: PROPHYLAXIS
     Route: 042
     Dates: start: 20150112
  13. TRASTUZUMAB [Suspect]
     Active Substance: TRASTUZUMAB
     Dosage: FOR 17 CYCLES AS PER PROTOCOL. ON 13/AUG/2015, MOST RECENT DOSE WAS GIVEN.?MAINTAINANCE DOSE
     Route: 042
  14. ONDASETRON [Concomitant]
     Active Substance: ONDANSETRON
     Indication: CEREBELLAR SYNDROME
     Route: 042
     Dates: start: 20150112
  15. PRIMPERAN [Concomitant]
     Active Substance: METOCLOPRAMIDE HYDROCHLORIDE
     Indication: NAUSEA
     Route: 048
     Dates: start: 20150126
  16. PERTUZUMAB [Suspect]
     Active Substance: PERTUZUMAB
     Dosage: FOR 17 CYCLES AS PER PROTOCOL. ON 13/AUG/2015, MOST RECENT DOSE WAS GIVEN.?MAINTAINANCE DOSE
     Route: 042

REACTIONS (1)
  - Cerebellar syndrome [Recovered/Resolved]

NARRATIVE: CASE EVENT DATE: 20150903
